FAERS Safety Report 10216531 (Version 2)
Quarter: 2014Q2

REPORT INFORMATION
  Report Type: Spontaneous
  Country: DE (occurrence: DE)
  Receive Date: 20140604
  Receipt Date: 20140604
  Transmission Date: 20141212
  Serious: Yes (Death, Life-Threatening, Hospitalization, Other)
  Sender: FDA-Public Use
  Company Number: DE-JNJFOC-20140419325

PATIENT
  Age: 84 Year
  Sex: Male
  Weight: 68 kg

DRUGS (12)
  1. XARELTO [Suspect]
     Indication: CEREBROVASCULAR ACCIDENT PROPHYLAXIS
     Route: 048
     Dates: start: 20130129, end: 201401
  2. XARELTO [Suspect]
     Indication: ATRIAL FIBRILLATION
     Route: 048
     Dates: start: 20130129, end: 201401
  3. CYMBALTA [Concomitant]
     Route: 065
  4. MORPHINE [Concomitant]
     Route: 058
  5. METFORMIN [Concomitant]
     Route: 065
  6. METOPROLOL SUCCINATE [Concomitant]
     Route: 065
  7. FURORESE [Concomitant]
     Route: 065
  8. TORASEMID [Concomitant]
     Route: 065
  9. TAVOR [Concomitant]
     Indication: RESTLESSNESS
     Route: 065
  10. FRAXIPARIN [Concomitant]
     Route: 065
  11. AMLODIPINE [Concomitant]
     Route: 065
  12. VALSARTAN [Concomitant]
     Route: 065

REACTIONS (4)
  - Cerebral haemorrhage [Fatal]
  - Subdural haematoma [Unknown]
  - Partial seizures [Unknown]
  - Convulsion [Unknown]
